FAERS Safety Report 5301768-2 (Version None)
Quarter: 2007Q2

REPORT INFORMATION
  Report Type: 
  Country: None (occurrence: None)
  Receive Date: 20070419
  Receipt Date: 20070412
  Transmission Date: 20071010
  Serious: Yes (Other)
  Sender: FDA-Public Use
  Company Number: 2007UW07005

PATIENT
  Age: 24 Year
  Sex: Male

DRUGS (2)
  1. PULMICORT [Suspect]
     Route: 055
     Dates: start: 20010203
  2. SALBUTAMOL [Concomitant]
     Route: 055
     Dates: start: 20010203

REACTIONS (1)
  - BREATH ALCOHOL TEST POSITIVE [None]
